FAERS Safety Report 25948418 (Version 1)
Quarter: 2025Q4

REPORT INFORMATION
  Report Type: Spontaneous
  Country: US (occurrence: None)
  Receive Date: 20251021
  Receipt Date: 20251021
  Transmission Date: 20260118
  Serious: Yes (Death)
  Sender: FDA-CTU
  Company Number: None

PATIENT
  Age: 79 Year
  Sex: Female
  Weight: 74.9 kg

DRUGS (22)
  1. TRUQAP [Suspect]
     Active Substance: CAPIVASERTIB
     Indication: Breast cancer stage IV
     Dosage: FREQUENCY : TWICE A DAY;?
     Route: 048
  2. Acetaminophen 500 mg oral tablet [Concomitant]
  3. Albuterol 90 mcg inhalation aerosol [Concomitant]
  4. Aspirin 81 mg oral tablet [Concomitant]
  5. Augmentin 875 mg oral tablet [Concomitant]
  6. Ciprofloxacin 750 mg oral tablet [Concomitant]
  7. Diltiazem hydrochloride ER 240 mg [Concomitant]
  8. Faslodex 50 mg/mL intramuscular solution 500 mg [Concomitant]
  9. Folic acid 1 mg oral tablet [Concomitant]
  10. Furosemide 20 mg oral tablet [Concomitant]
  11. Levothyroxine 50 mcg oral tablet [Concomitant]
  12. LORATADINE [Concomitant]
     Active Substance: LORATADINE
  13. losartan 50 mg oral tablet [Concomitant]
  14. metoprolol succinate 50 mg oral tablet [Concomitant]
  15. ondansetron 8 mg oral disintegrating tablet [Concomitant]
  16. potassium bicarbonate 25 mEq oral tablet [Concomitant]
  17. Prevacid 30 mg oral delayed release capsule [Concomitant]
  18. prochlorperazine 10 mg oral tablet [Concomitant]
  19. prochlorperazine 25 mg rectal suppository 25 mg [Concomitant]
  20. Schiff Move Free 500 mg-400 mg oral tablet [Concomitant]
  21. Tums 500 mg oral tablet [Concomitant]
  22. Vitamin B12 500 mcg [Concomitant]

REACTIONS (9)
  - Bradycardia [None]
  - Hyperglycaemia [None]
  - Acute kidney injury [None]
  - Lactic acidosis [None]
  - Hyperkalaemia [None]
  - Sepsis [None]
  - Septic shock [None]
  - Unresponsive to stimuli [None]
  - Stupor [None]

NARRATIVE: CASE EVENT DATE: 20250805
